FAERS Safety Report 10048852 (Version 2)
Quarter: 2014Q2

REPORT INFORMATION
  Report Type: Spontaneous
  Country: US (occurrence: None)
  Receive Date: 20140327
  Receipt Date: 20140425
  Transmission Date: 20141212
  Serious: Yes (Hospitalization)
  Sender: FDA-Public Use
  Company Number: UTC-046080

PATIENT
  Age: 74 Year
  Sex: Female

DRUGS (12)
  1. REMODULIN [Suspect]
     Indication: PULMONARY ARTERIAL HYPERTENSION
     Dates: start: 201309
  2. ADCIRCA (TADALAFIL) [Concomitant]
  3. COUMADIN (WARFARIN SODIUM) [Concomitant]
  4. AMIODARONE (AMIODARONE HYDROCHLORIDE) [Concomitant]
  5. PRAVASTATIN (PRAVASTATIN) [Concomitant]
  6. PROZAC (FLUOXETINE) [Concomitant]
  7. DIGOXIN (DOGOXIN) [Concomitant]
  8. POTASSIUM (POTASSIUM) [Concomitant]
  9. METOLAZONE (METOLAZONE [Concomitant]
  10. LASIX (FUROSEMIDE) [Concomitant]
  11. OXYCONTIN (OXYCODONE HYDROCHLORIDE) [Concomitant]
  12. HYDROCODONE (HYDROCODONE) [Concomitant]

REACTIONS (5)
  - Nausea [None]
  - Fatigue [None]
  - Malaise [None]
  - Asthenia [None]
  - Urinary tract infection [None]
